FAERS Safety Report 5342450-5 (Version None)
Quarter: 2007Q2

REPORT INFORMATION
  Report Type: 
  Country: None (occurrence: None)
  Receive Date: 20070601
  Receipt Date: 20070524
  Transmission Date: 20071010
  Serious: Yes (Other)
  Sender: FDA-Public Use
  Company Number: FR-PFIZER INC-2007011794

PATIENT
  Sex: Female
  Weight: 69 kg

DRUGS (8)
  1. REVATIO [Suspect]
     Indication: PULMONARY HYPERTENSION
     Route: 048
  2. ILOPROST [Suspect]
     Indication: PULMONARY HYPERTENSION
     Dosage: TEXT:5UG
  3. MYCOPHENOLATE MOFETIL [Concomitant]
     Route: 048
  4. TACROLIMUS [Concomitant]
     Route: 048
     Dates: start: 20000901
  5. PREDNISONE TAB [Concomitant]
     Route: 048
     Dates: start: 20000901
  6. OMEPRAZOLE [Concomitant]
     Route: 048
     Dates: start: 20000901
  7. FUROSEMIDE [Concomitant]
     Route: 048
     Dates: start: 20000901
  8. INSULIN [Concomitant]
     Route: 042

REACTIONS (2)
  - ECCHYMOSIS [None]
  - HAEMORRHAGE [None]
